FAERS Safety Report 24170051 (Version 1)
Quarter: 2024Q3

REPORT INFORMATION
  Report Type: Report from Study
  Country: FR (occurrence: FR)
  Receive Date: 20240803
  Receipt Date: 20240803
  Transmission Date: 20241017
  Serious: Yes (Hospitalization)
  Sender: ABBVIE
  Company Number: FR-ABBVIE-5864734

PATIENT
  Age: 60 Year
  Sex: Male
  Weight: 73 kg

DRUGS (3)
  1. UPADACITINIB [Suspect]
     Active Substance: UPADACITINIB
     Indication: Colitis ulcerative
     Route: 048
     Dates: start: 20240422, end: 20240605
  2. SOLUPRED [Concomitant]
     Indication: Colitis
     Route: 042
     Dates: start: 20240503, end: 20240510
  3. SOLUPRED [Concomitant]
     Indication: Colitis
     Route: 048
     Dates: start: 20240511

REACTIONS (1)
  - Rectal discharge [Recovered/Resolved]

NARRATIVE: CASE EVENT DATE: 20240714
